FAERS Safety Report 10677114 (Version 1)
Quarter: 2014Q4

REPORT INFORMATION
  Report Type: Spontaneous
  Country: SE (occurrence: SE)
  Receive Date: 20141226
  Receipt Date: 20141226
  Transmission Date: 20150529
  Serious: Yes (Hospitalization)
  Sender: FDA-Public Use
  Company Number: SE-ASTRAZENECA-2014SE99035

PATIENT
  Age: 42 Year
  Sex: Male

DRUGS (7)
  1. TRADOLAN RETARD [Suspect]
     Active Substance: TRAMADOL HYDROCHLORIDE
     Indication: RESTLESSNESS
     Dosage: 10-15 TABLETS OF TRAMADOL 100MG
     Route: 048
     Dates: start: 20131103, end: 20131103
  2. ANTABUSE [Concomitant]
     Active Substance: DISULFIRAM
  3. TENORMIN [Suspect]
     Active Substance: ATENOLOL
     Indication: RESTLESSNESS
     Dosage: 10 PIECES OF ATENOLOL 50 MG
     Route: 048
     Dates: start: 20131103, end: 20131103
  4. ENALAPRIL [Suspect]
     Active Substance: ENALAPRIL
     Indication: RESTLESSNESS
     Dosage: 10 PIECES OF ENALAPRIL 10 MG
     Route: 048
     Dates: start: 20131103, end: 20131103
  5. CAMPRAL [Concomitant]
     Active Substance: ACAMPROSATE CALCIUM
  6. ALIMEMAZINE [Concomitant]
     Active Substance: TRIMEPRAZINE
  7. OMEPRAZOLE. [Concomitant]
     Active Substance: OMEPRAZOLE

REACTIONS (4)
  - Intentional overdose [Recovered/Resolved]
  - Intentional product misuse [None]
  - Toxicity to various agents [Recovered/Resolved]
  - Agitation [Recovered/Resolved]
